FAERS Safety Report 12469884 (Version 3)
Quarter: 2017Q1

REPORT INFORMATION
  Report Type: Report from Study
  Country: None (occurrence: BR)
  Receive Date: 20160615
  Receipt Date: 20170112
  Transmission Date: 20170428
  Serious: Yes (Other)
  Sender: FDA-Public Use
  Company Number: BR-ABBVIE-16P-020-1653156-00

PATIENT
  Age: 67 Year
  Sex: Female

DRUGS (3)
  1. SYNTHROID [Suspect]
     Active Substance: LEVOTHYROXINE SODIUM
     Indication: THYROID DISORDER
     Dosage: DAILY DOSE: 25 MICROGRAM; FASTING
     Route: 048
  2. SYNTHROID [Suspect]
     Active Substance: LEVOTHYROXINE SODIUM
     Route: 065
  3. SYNTHROID [Suspect]
     Active Substance: LEVOTHYROXINE SODIUM
     Dosage: STOPPED IN JAN 2016 DURING 1 MONTH, RESTARTED IN FEB 2016 ACCORDING TO HER PHYSICIAN.
     Route: 065

REACTIONS (17)
  - Uterine disorder [Recovered/Resolved]
  - Nasopharyngitis [Recovered/Resolved]
  - Weight increased [Not Recovered/Not Resolved]
  - Vitamin D decreased [Recovering/Resolving]
  - Gastric disorder [Not Recovered/Not Resolved]
  - Lower limb fracture [Recovered/Resolved]
  - Hyperhidrosis [Recovered/Resolved]
  - Hypersensitivity [Recovered/Resolved]
  - Thyroid disorder [Recovered/Resolved]
  - Urticaria [Recovered/Resolved]
  - Drug dose omission [Unknown]
  - Iron deficiency [Recovering/Resolving]
  - Ligament sprain [Recovering/Resolving]
  - Feeling hot [Unknown]
  - Diabetes mellitus [Recovering/Resolving]
  - Haemorrhoids [Recovered/Resolved]
  - Vitamin E decreased [Recovering/Resolving]

NARRATIVE: CASE EVENT DATE: 1998
